FAERS Safety Report 19650119 (Version 1)
Quarter: 2021Q3

REPORT INFORMATION
  Report Type: Spontaneous
  Country: AT (occurrence: AT)
  Receive Date: 20210802
  Receipt Date: 20210802
  Transmission Date: 20211014
  Serious: Yes (Other)
  Sender: FDA-Public Use
  Company Number: AT-TEVA-2021-AT-1934938

PATIENT
  Age: 65 Year
  Sex: Female

DRUGS (1)
  1. DEXAMETHASONE. [Suspect]
     Active Substance: DEXAMETHASONE
     Indication: ACUTE MYELOID LEUKAEMIA
     Route: 065

REACTIONS (6)
  - Thrombocytopenia [Recovered/Resolved]
  - Acute kidney injury [Recovering/Resolving]
  - Respiratory failure [Recovering/Resolving]
  - Inflammation [Recovering/Resolving]
  - Hypertriglyceridaemia [Recovered/Resolved]
  - Weight decreased [Recovered/Resolved]
